FAERS Safety Report 13214577 (Version 1)
Quarter: 2017Q1

REPORT INFORMATION
  Report Type: Spontaneous
  Country: US (occurrence: US)
  Receive Date: 20170210
  Receipt Date: 20170210
  Transmission Date: 20170428
  Serious: Yes (Hospitalization)
  Sender: FDA-Public Use
  Company Number: US-SA-2017SA022768

PATIENT
  Age: 41 Year

DRUGS (1)
  1. LEMTRADA [Suspect]
     Active Substance: ALEMTUZUMAB
     Indication: MULTIPLE SCLEROSIS
     Route: 042
     Dates: start: 20160926, end: 20160928

REACTIONS (10)
  - Pain in extremity [Unknown]
  - Tachycardia [Unknown]
  - Dyspnoea [Unknown]
  - Arthralgia [Unknown]
  - Blood pressure decreased [Unknown]
  - Anal incontinence [Unknown]
  - White blood cell count increased [Unknown]
  - Abdominal pain upper [Unknown]
  - Muscular weakness [Unknown]
  - Lymphocyte count abnormal [Unknown]

NARRATIVE: CASE EVENT DATE: 20170129
